FAERS Safety Report 5274319-9 (Version None)
Quarter: 2007Q1

REPORT INFORMATION
  Report Type: 
  Country: None (occurrence: None)
  Receive Date: 20070323
  Receipt Date: 20070313
  Transmission Date: 20070707
  Serious: Yes (Death, Hospitalization, Other)
  Sender: FDA-Public Use
  Company Number: BE-AMGEN-UK208926

PATIENT
  Age: 85 Year
  Sex: Female

DRUGS (3)
  1. MIMPARA [Suspect]
     Indication: HYPERPARATHYROIDISM SECONDARY
     Route: 048
     Dates: start: 20050221, end: 20070128
  2. BISACODYL [Suspect]
     Route: 048
     Dates: start: 20070117, end: 20070118
  3. ANTIBIOTICS [Concomitant]
     Route: 042
     Dates: start: 20070118

REACTIONS (6)
  - BLOOD PHOSPHORUS ABNORMAL [None]
  - HYPOCALCAEMIA [None]
  - MELAENA [None]
  - PNEUMONIA [None]
  - PROCEDURAL HYPOTENSION [None]
  - SHOCK [None]
